FAERS Safety Report 9414730 (Version 1)
Quarter: 2013Q3

REPORT INFORMATION
  Report Type: Spontaneous
  Country: US (occurrence: US)
  Receive Date: 20130723
  Receipt Date: 20130723
  Transmission Date: 20140515
  Serious: Yes (Other)
  Sender: FDA-Public Use
  Company Number: US-TEVA-414376USA

PATIENT
  Age: 20 Year
  Sex: Female

DRUGS (1)
  1. PARAGARD 380A [Suspect]
     Indication: CONTRACEPTION
     Route: 015
     Dates: end: 20130614

REACTIONS (3)
  - Uterine perforation [Unknown]
  - Metrorrhagia [Recovered/Resolved]
  - Pain [Recovered/Resolved]
